FAERS Safety Report 7541990-8 (Version None)
Quarter: 2011Q2

REPORT INFORMATION
  Report Type: 
  Country: None (occurrence: None)
  Receive Date: 20110613
  Receipt Date: 20110607
  Transmission Date: 20111010
  Serious: Yes (Hospitalization)
  Sender: FDA-Public Use
  Company Number: FR-BRISTOL-MYERS SQUIBB COMPANY-15816648

PATIENT
  Age: 76 Year
  Sex: Male
  Weight: 70 kg

DRUGS (5)
  1. ORENCIA [Suspect]
     Route: 042
     Dates: start: 20110318
  2. LEVOTHYROXINE SODIUM [Suspect]
     Indication: HYPOTHYROIDISM
  3. SYMBICORT [Suspect]
     Route: 055
  4. PLAQUENIL [Suspect]
     Indication: RHEUMATOID ARTHRITIS
     Route: 048
  5. POTASSIUM CHLORIDE [Suspect]
     Indication: PROPHYLAXIS
     Dosage: 1DF=2 UNIT NOT SPECIFIED

REACTIONS (2)
  - ARTHRITIS [None]
  - AGRANULOCYTOSIS [None]
